FAERS Safety Report 9717669 (Version 2)
Quarter: 2013Q4

REPORT INFORMATION
  Report Type: Spontaneous
  Country: US (occurrence: None)
  Receive Date: 20131125
  Receipt Date: 20131217
  Transmission Date: 20140711
  Serious: Yes (Other)
  Sender: FDA-Public Use
  Company Number: AUR-APL-2013-09713

PATIENT
  Age: 74 Year
  Sex: Female

DRUGS (1)
  1. CIPROFLOXACIN (CIPROFLOXACIN) [Suspect]
     Indication: URINARY TRACT INFECTION
     Dosage: 2 DOSAGE FORMS  (1 DOSAGE FORMS, 2 IN 1 D), UNKNOWN
     Dates: start: 2013

REACTIONS (10)
  - Constipation [None]
  - Dysuria [None]
  - Headache [None]
  - Dizziness [None]
  - Vomiting [None]
  - Malaise [None]
  - Fall [None]
  - Head injury [None]
  - Laceration [None]
  - Vulvovaginal swelling [None]
